FAERS Safety Report 7234606 (Version 3)
Quarter: 2013Q3

REPORT INFORMATION
  Report Type: Spontaneous
  Country: JP (occurrence: None)
  Receive Date: 20091210
  Receipt Date: 20130724
  Transmission Date: 20140515
  Serious: Yes (Death)
  Sender: FDA-Public Use
  Company Number: THYM-1001315

PATIENT
  Age: 70 Year
  Sex: Male
  Weight: 56 kg

DRUGS (9)
  1. THYMOGLOBULINE [Suspect]
     Indication: APLASTIC ANAEMIA
     Dosage: 3.75 MG/KG, QD, INTRAVENOUS
     Dates: start: 20091102, end: 20091106
  2. CICLOSPORIN (CICLOSPORIN) [Concomitant]
  3. NEUPOGEN [Concomitant]
  4. GRAN (FILGRASTIM) [Concomitant]
  5. SOLU-MEDROL (METHYLPREDNISOLONE SODIUM SUCCINATE)? [Concomitant]
  6. MAXIPEME (CEFEPIME HYDROCHLORIDE) [Concomitant]
  7. NEORAL (CICLOSPORIN) [Concomitant]
  8. AMLODIN (AMLODIPINE BESILATE) [Concomitant]
  9. OLMETEC (OLMESARTAN MEDOXOMIL) [Concomitant]

REACTIONS (1)
  - Pulmonary haemorrhage [None]
